FAERS Safety Report 18280116 (Version 4)
Quarter: 2020Q3

REPORT INFORMATION
  Report Type: Spontaneous
  Country: US (occurrence: US)
  Receive Date: 20200917
  Receipt Date: 20200928
  Transmission Date: 20201103
  Serious: No
  Sender: FDA-Public Use
  Company Number: US-PFIZER INC-2020351872

PATIENT
  Age: 79 Year
  Sex: Female
  Weight: 68.95 kg

DRUGS (2)
  1. TOVIAZ [Suspect]
     Active Substance: FESOTERODINE FUMARATE
     Dosage: 8 MG, 1X/DAY (1 TABLET AT NIGHT BY MOUTH)
     Route: 048
  2. TOVIAZ [Suspect]
     Active Substance: FESOTERODINE FUMARATE
     Indication: URINARY INCONTINENCE
     Dosage: 4 MG

REACTIONS (3)
  - Dry mouth [Unknown]
  - Malaise [Unknown]
  - Therapeutic product effect incomplete [Unknown]
